FAERS Safety Report 9518551 (Version 2)
Quarter: 2013Q4

REPORT INFORMATION
  Report Type: Report from Study
  Country: US (occurrence: US)
  Receive Date: 20130912
  Receipt Date: 20131028
  Transmission Date: 20140711
  Serious: Yes (Hospitalization)
  Sender: FDA-Public Use
  Company Number: PHEH2013US018889

PATIENT
  Age: 26 Year
  Sex: Male

DRUGS (1)
  1. TOBI [Suspect]
     Dosage: UNK

REACTIONS (1)
  - Condition aggravated [Recovered/Resolved]
